FAERS Safety Report 5082528-7 (Version None)
Quarter: 2006Q3

REPORT INFORMATION
  Report Type: 
  Country: None (occurrence: None)
  Receive Date: 20060817
  Receipt Date: 20060627
  Transmission Date: 20061208
  Serious: Yes (Life-Threatening, Hospitalization)
  Sender: FDA-Public Use
  Company Number: FR-ROCHE-453419

PATIENT
  Age: 45 Year
  Sex: Male
  Weight: 75 kg

DRUGS (3)
  1. APRANAX [Suspect]
     Indication: DRUG USE FOR UNKNOWN INDICATION
     Route: 065
  2. PEGASYS [Suspect]
     Indication: HEPATITIS C
     Route: 058
     Dates: start: 20060326, end: 20060618
  3. COPEGUS [Concomitant]
     Indication: HEPATITIS C
     Dates: start: 20060326, end: 20060618

REACTIONS (3)
  - BONE MARROW FAILURE [None]
  - GINGIVAL BLEEDING [None]
  - PYREXIA [None]
